FAERS Safety Report 5263130-0 (Version None)
Quarter: 2007Q1

REPORT INFORMATION
  Report Type: 
  Country: None (occurrence: None)
  Receive Date: 20070312
  Receipt Date: 20070228
  Transmission Date: 20070707
  Serious: Yes (Death, Other)
  Sender: FDA-Public Use
  Company Number: HR-PFIZER INC-2007013795

PATIENT
  Sex: Female

DRUGS (4)
  1. ZELDOX (CAPSULES) [Suspect]
     Indication: SCHIZOPHRENIA, RESIDUAL TYPE
     Route: 048
     Dates: start: 20061129, end: 20061216
  2. LORAZEPAM [Concomitant]
     Dosage: DAILY DOSE:2.5MG
     Route: 048
  3. DIAZEPAM [Concomitant]
     Route: 048
  4. LACIDIPINE [Concomitant]
     Route: 048

REACTIONS (12)
  - ACUTE PULMONARY OEDEMA [None]
  - ARTERIOSCLEROSIS [None]
  - CARDIAC HYPERTROPHY [None]
  - CARDIOMEGALY [None]
  - CYSTITIS NONINFECTIVE [None]
  - ELECTROCARDIOGRAM QT PROLONGED [None]
  - EMPHYSEMA [None]
  - ISCHAEMIC CARDIOMYOPATHY [None]
  - MYOCARDIAL FIBROSIS [None]
  - PNEUMONIA [None]
  - PULMONARY HAEMORRHAGE [None]
  - SPLENITIS [None]
